FAERS Safety Report 9227985 (Version 1)
Quarter: 2013Q2

REPORT INFORMATION
  Report Type: Spontaneous
  Country: TR (occurrence: TR)
  Receive Date: 20130412
  Receipt Date: 20130412
  Transmission Date: 20140414
  Serious: Yes (Death, Hospitalization)
  Sender: FDA-Public Use
  Company Number: TR-BIOMARINAP-TR-2013-100579

PATIENT
  Sex: Female
  Weight: 11.4 kg

DRUGS (1)
  1. NAGLAZYME [Suspect]
     Indication: MUCOPOLYSACCHARIDOSIS VI
     Dosage: 10 ML, QW
     Route: 041
     Dates: start: 20101109

REACTIONS (2)
  - Mitral valve incompetence [Fatal]
  - Cardiac arrest [Unknown]
